FAERS Safety Report 7347890-0 (Version None)
Quarter: 2011Q1

REPORT INFORMATION
  Report Type: 
  Country: None (occurrence: None)
  Receive Date: 20110311
  Receipt Date: 20110301
  Transmission Date: 20110831
  Serious: Yes (Hospitalization, Other)
  Sender: FDA-Public Use
  Company Number: US-PFIZER INC-US-WYE-H15011910

PATIENT
  Sex: Male

DRUGS (1)
  1. BENEFIX [Suspect]
     Indication: FACTOR IX DEFICIENCY
     Dosage: UNKNOWN
     Route: 042

REACTIONS (5)
  - FACTOR IX INHIBITION [None]
  - URTICARIA [None]
  - ANAPHYLACTOID REACTION [None]
  - CONVULSION [None]
  - CEREBRAL HAEMORRHAGE [None]
